FAERS Safety Report 24138001 (Version 1)
Quarter: 2024Q3

REPORT INFORMATION
  Report Type: Spontaneous
  Country: US (occurrence: None)
  Receive Date: 20240725
  Receipt Date: 20240725
  Transmission Date: 20241016
  Serious: No
  Sender: Public
  Company Number: None

PATIENT

DRUGS (1)
  1. LEQVIO [Suspect]
     Active Substance: INCLISIRAN SODIUM
     Indication: Low density lipoprotein increased
     Dosage: OTHER ROUTE : INJECTION ;?
     Route: 050

REACTIONS (7)
  - Vomiting [None]
  - Discoloured vomit [None]
  - Chromaturia [None]
  - Diarrhoea [None]
  - Nausea [None]
  - Chills [None]
  - Urinary tract infection [None]

NARRATIVE: CASE EVENT DATE: 20240621
